APPROVED DRUG PRODUCT: MEPERIDINE HYDROCHLORIDE
Active Ingredient: MEPERIDINE HYDROCHLORIDE
Strength: 50MG
Dosage Form/Route: TABLET;ORAL
Application: A040186 | Product #001
Applicant: WATSON LABORATORIES INC
Approved: Jun 30, 1997 | RLD: No | RS: No | Type: DISCN